FAERS Safety Report 16066857 (Version 3)
Quarter: 2019Q2

REPORT INFORMATION
  Report Type: Spontaneous
  Country: JP (occurrence: JP)
  Receive Date: 20190313
  Receipt Date: 20190509
  Transmission Date: 20190711
  Serious: Yes (Other)
  Sender: FDA-Public Use
  Company Number: JP-BAYER-2019-049041

PATIENT
  Age: 78 Year
  Sex: Male

DRUGS (3)
  1. LEUPLIN [Concomitant]
     Active Substance: LEUPROLIDE ACETATE
  2. BICALUTAMIDE. [Concomitant]
     Active Substance: BICALUTAMIDE
  3. XOFIGO [Suspect]
     Active Substance: RADIUM RA-223 DICHLORIDE
     Indication: PALLIATIVE CARE
     Route: 042

REACTIONS (2)
  - Prostate cancer [Not Recovered/Not Resolved]
  - Metastases to liver [None]

NARRATIVE: CASE EVENT DATE: 20190201
